FAERS Safety Report 6706103-0 (Version None)
Quarter: 2010Q2

REPORT INFORMATION
  Report Type: 
  Country: None (occurrence: None)
  Receive Date: 20100503
  Receipt Date: 20100302
  Transmission Date: 20101027
  Serious: Yes (Life-Threatening, Hospitalization, Other)
  Sender: FDA-Public Use
  Company Number: FR-PFIZER INC-2010054395

PATIENT
  Age: 76 Year
  Sex: Female

DRUGS (6)
  1. ATARAX [Suspect]
     Dosage: 50 MG, 1X/DAY
     Route: 048
     Dates: start: 20100128, end: 20100129
  2. KEPPRA [Suspect]
     Indication: CONVULSION
     Dosage: 500 MG, 2X/DAY
     Route: 048
     Dates: start: 20100127, end: 20100129
  3. NEURONTIN [Concomitant]
     Dosage: 400 MG, 3X/DAY
     Route: 048
  4. EXELON [Concomitant]
     Dosage: 9.5 MG, 1X/DAY PATCH
     Route: 003
  5. DURAGESIC-100 [Concomitant]
     Dosage: 75 UG, 1X/DAY
     Route: 003
  6. RISPERDAL [Concomitant]
     Dosage: 1 MG, 1X/DAY
     Route: 048

REACTIONS (1)
  - COMA [None]
